FAERS Safety Report 9548201 (Version 4)
Quarter: 2014Q2

REPORT INFORMATION
  Report Type: Report from Study
  Country: US (occurrence: US)
  Receive Date: 20130924
  Receipt Date: 20140414
  Transmission Date: 20141212
  Serious: Yes (Other)
  Sender: FDA-Public Use
  Company Number: US-US-EMD SERONO, INC.-7238085

PATIENT
  Age: 43 Year
  Sex: Female

DRUGS (2)
  1. REBIF [Suspect]
     Indication: MULTIPLE SCLEROSIS
     Route: 058
     Dates: start: 20111020
  2. MARIJUANA [Concomitant]
     Indication: PRODUCT USED FOR UNKNOWN INDICATION

REACTIONS (7)
  - Loss of consciousness [Recovered/Resolved]
  - Staring [Unknown]
  - Vomiting [Unknown]
  - Speech disorder [Not Recovered/Not Resolved]
  - Hypotension [Unknown]
  - Dehydration [Unknown]
  - Multiple sclerosis relapse [Not Recovered/Not Resolved]
